FAERS Safety Report 21302367 (Version 1)
Quarter: 2022Q3

REPORT INFORMATION
  Report Type: Report from Study
  Country: PR (occurrence: PR)
  Receive Date: 20220907
  Receipt Date: 20220907
  Transmission Date: 20221026
  Serious: Yes (Death)
  Sender: FDA-Public Use
  Company Number: PR-ABBVIE-22K-131-4529911-00

PATIENT
  Sex: Female
  Weight: 49.486 kg

DRUGS (1)
  1. VENCLEXTA [Suspect]
     Active Substance: VENETOCLAX
     Indication: Acute myeloid leukaemia
     Dosage: DAILY
     Route: 048
     Dates: start: 20220114

REACTIONS (1)
  - Death [Fatal]
